FAERS Safety Report 8571931-6 (Version None)
Quarter: 2012Q3

REPORT INFORMATION
  Report Type: 
  Country: None (occurrence: None)
  Receive Date: 20120806
  Receipt Date: 20120731
  Transmission Date: 20120928
  Serious: Yes (Hospitalization)
  Sender: FDA-Public Use
  Company Number: JP-PFIZER INC-2012184855

PATIENT
  Age: 37 Year
  Sex: Female

DRUGS (5)
  1. SELBEX [Concomitant]
     Route: 048
  2. SOPHIA A [Suspect]
     Indication: THROMBOSIS
     Route: 048
  3. PREMARIN [Suspect]
     Indication: THROMBOSIS
     Dosage: 2.5 MG, 1X/DAY
     Route: 048
  4. PROVERA [Suspect]
     Indication: THROMBOSIS
     Dosage: 10 MG, 1X/DAY
     Route: 048
  5. METHOTREXATE [Concomitant]

REACTIONS (2)
  - OFF LABEL USE [None]
  - CEREBRAL INFARCTION [None]
